FAERS Safety Report 23192317 (Version 1)
Quarter: 2023Q4

REPORT INFORMATION
  Report Type: Spontaneous
  Country: CA (occurrence: CA)
  Receive Date: 20231116
  Receipt Date: 20231116
  Transmission Date: 20240110
  Serious: Yes (Other)
  Sender: FDA-Public Use
  Company Number: CA-KARYOPHARM-2023KPT002065

PATIENT

DRUGS (3)
  1. XPOVIO [Suspect]
     Active Substance: SELINEXOR
     Indication: Glioblastoma
     Dosage: 100 MG
     Route: 048
     Dates: start: 20230921
  2. XPOVIO [Suspect]
     Active Substance: SELINEXOR
     Dosage: 80 MG, ONCE A WEEK FOR 4 WEEKS
     Route: 048
     Dates: start: 20231012, end: 202311
  3. BEVACIZUMAB [Concomitant]
     Active Substance: BEVACIZUMAB
     Dosage: UNK

REACTIONS (4)
  - Glioblastoma [Unknown]
  - Neutropenia [Unknown]
  - Nausea [Unknown]
  - Off label use [Not Recovered/Not Resolved]

NARRATIVE: CASE EVENT DATE: 20230101
